FAERS Safety Report 23972874 (Version 1)
Quarter: 2024Q2

REPORT INFORMATION
  Report Type: Spontaneous
  Country: US (occurrence: None)
  Receive Date: 20240613
  Receipt Date: 20240613
  Transmission Date: 20240716
  Serious: Yes (Hospitalization)
  Sender: FDA-Public Use
  Company Number: None

PATIENT
  Age: 56 Year
  Sex: Male

DRUGS (1)
  1. SKYRIZI [Suspect]
     Active Substance: RISANKIZUMAB-RZAA
     Indication: Crohn^s disease
     Dosage: FREQUENCY : AS DIRECTED;?

REACTIONS (5)
  - Infusion related reaction [None]
  - Neuropathy peripheral [None]
  - Cardiac failure [None]
  - Vaccination complication [None]
  - COVID-19 immunisation [None]
